FAERS Safety Report 5787192-7 (Version None)
Quarter: 2008Q2

REPORT INFORMATION
  Report Type: 
  Country: None (occurrence: None)
  Receive Date: 20080625
  Receipt Date: 20070904
  Transmission Date: 20081010
  Serious: No
  Sender: FDA-Public Use
  Company Number: US-ASTRAZENECA-2007UW20867

PATIENT
  Age: 74 Year
  Sex: Female
  Weight: 50.8 kg

DRUGS (6)
  1. PULMICORT TH [Suspect]
     Indication: ASTHMA
     Route: 055
  2. THEOPHYLLINE [Concomitant]
  3. POTASSIUM CHLORIDE [Concomitant]
  4. PLAVIX [Concomitant]
  5. LEXAPRO [Concomitant]
  6. VOSPIRE [Concomitant]

REACTIONS (2)
  - ASTHMA [None]
  - DRUG INEFFECTIVE [None]
